FAERS Safety Report 13822652 (Version 1)
Quarter: 2017Q3

REPORT INFORMATION
  Report Type: Spontaneous
  Country: US (occurrence: US)
  Receive Date: 20170801
  Receipt Date: 20170801
  Transmission Date: 20171127
  Serious: Yes (Other)
  Sender: FDA-Public Use
  Company Number: US-ALVOGEN-2017-ALVOGEN-092849

PATIENT
  Sex: Male

DRUGS (22)
  1. SYMBICORT [Suspect]
     Active Substance: BUDESONIDE\FORMOTEROL FUMARATE DIHYDRATE
     Indication: PRODUCT USED FOR UNKNOWN INDICATION
     Dosage: 2 DF EQUALS 2 PUFFS
     Route: 055
     Dates: start: 20160422
  2. GLUCOSE [Concomitant]
     Active Substance: DEXTROSE
     Dates: start: 20110516
  3. CAPTOPRIL. [Concomitant]
     Active Substance: CAPTOPRIL
     Indication: PRODUCT USED FOR UNKNOWN INDICATION
     Route: 048
     Dates: start: 20050513
  4. CYANOCOBALAMIN. [Concomitant]
     Active Substance: CYANOCOBALAMIN
     Indication: PRODUCT USED FOR UNKNOWN INDICATION
     Dosage: 1000 MCG/ML INJECTION SOLUTION
     Route: 030
     Dates: start: 20151008
  5. LEVOTHYROXINE. [Concomitant]
     Active Substance: LEVOTHYROXINE
     Indication: PRODUCT USED FOR UNKNOWN INDICATION
     Route: 048
  6. GLUCOSE [Concomitant]
     Active Substance: DEXTROSE
     Dosage: ONE TOUCH CONTROL NORMAL SOLUTION
     Dates: start: 20100415
  7. SPIRIVA [Concomitant]
     Active Substance: TIOTROPIUM BROMIDE MONOHYDRATE
     Indication: PRODUCT USED FOR UNKNOWN INDICATION
     Dosage: SPIRIVA HANDIHALER 18 MCG INHALATION CAPSULE
     Route: 055
     Dates: start: 20150423
  8. ATENOLOL. [Suspect]
     Active Substance: ATENOLOL
     Indication: PRODUCT USED FOR UNKNOWN INDICATION
     Route: 048
  9. ATORVASTATIN CALCIUM. [Concomitant]
     Active Substance: ATORVASTATIN CALCIUM
     Indication: PRODUCT USED FOR UNKNOWN INDICATION
     Route: 048
     Dates: start: 20160217
  10. FLOVENT DISKUS [Concomitant]
     Active Substance: FLUTICASONE PROPIONATE
     Indication: PRODUCT USED FOR UNKNOWN INDICATION
     Dosage: 250 MCG/BUST INHALATION AEROSOL POWDER BREATH ACTIVATED
     Route: 055
     Dates: start: 20150423
  11. LIPITOR [Concomitant]
     Active Substance: ATORVASTATIN CALCIUM
     Indication: PRODUCT USED FOR UNKNOWN INDICATION
     Route: 048
  12. NOVOLOG [Concomitant]
     Active Substance: INSULIN ASPART
     Indication: PRODUCT USED FOR UNKNOWN INDICATION
     Dates: start: 20111209
  13. FELODIPINE. [Concomitant]
     Active Substance: FELODIPINE
     Indication: PRODUCT USED FOR UNKNOWN INDICATION
     Route: 048
     Dates: start: 20100201
  14. FUROSEMIDE. [Concomitant]
     Active Substance: FUROSEMIDE
     Indication: PRODUCT USED FOR UNKNOWN INDICATION
     Route: 048
     Dates: start: 20100315
  15. LEVEMIR [Concomitant]
     Active Substance: INSULIN DETEMIR
     Indication: BLOOD GLUCOSE INCREASED
     Dosage: USES BEFORE MEALS IF SUGAR IS TOO HIGH
     Dates: start: 20150922
  16. SALBUTAMOL SULFATE [Concomitant]
     Active Substance: ALBUTEROL SULFATE
     Indication: PRODUCT USED FOR UNKNOWN INDICATION
     Dosage: 1DF IS (2.5 MG/3ML) 0.083% INHALATION NEBULIZATION SOLUTION
     Route: 055
     Dates: start: 20150423
  17. ALPRAZOLAM. [Concomitant]
     Active Substance: ALPRAZOLAM
     Indication: PRODUCT USED FOR UNKNOWN INDICATION
     Route: 048
     Dates: start: 20101220
  18. CLOPIDOGREL [Concomitant]
     Active Substance: CLOPIDOGREL BISULFATE
     Indication: PRODUCT USED FOR UNKNOWN INDICATION
     Route: 048
  19. TRAMADOL HYDROCHLORIDE. [Concomitant]
     Active Substance: TRAMADOL HYDROCHLORIDE
     Indication: PRODUCT USED FOR UNKNOWN INDICATION
     Dosage: TAKE 1 PO Q 6HR PRN
     Route: 048
     Dates: start: 20110803
  20. GLUCOSE [Concomitant]
     Active Substance: DEXTROSE
     Dates: start: 20100415
  21. TEMAZEPAM. [Concomitant]
     Active Substance: TEMAZEPAM
     Indication: PRODUCT USED FOR UNKNOWN INDICATION
     Route: 048
     Dates: start: 20110119
  22. GLUCOSE [Concomitant]
     Active Substance: DEXTROSE
     Dates: start: 20070810

REACTIONS (25)
  - Bronchiectasis [Unknown]
  - Anxiety [Unknown]
  - Back pain [Unknown]
  - Prostatic specific antigen increased [Unknown]
  - Neck pain [Unknown]
  - Arthralgia [Unknown]
  - Chronic obstructive pulmonary disease [Unknown]
  - Diabetes mellitus [Unknown]
  - Essential hypertension [Unknown]
  - Oedema [Unknown]
  - Hypovitaminosis [Unknown]
  - Sinus disorder [Unknown]
  - Muscle haemorrhage [Unknown]
  - Anaemia [Unknown]
  - Gastrooesophageal reflux disease [Unknown]
  - Hyperlipidaemia [Unknown]
  - Hypothyroidism [Unknown]
  - Insomnia [Unknown]
  - Osteoarthritis [Unknown]
  - Wheezing [Unknown]
  - Dementia Alzheimer^s type [Unknown]
  - Chest pain [Unknown]
  - Fatigue [Unknown]
  - Obesity [Unknown]
  - Erectile dysfunction [Unknown]
